FAERS Safety Report 12266321 (Version 1)
Quarter: 2016Q2

REPORT INFORMATION
  Report Type: Spontaneous
  Country: CA (occurrence: None)
  Receive Date: 20160413
  Receipt Date: 20160413
  Transmission Date: 20160815
  Serious: Yes (Disabling)
  Sender: FDA-Public Use
  Company Number: None

PATIENT
  Age: 43 Year
  Sex: Female
  Weight: 63.5 kg

DRUGS (3)
  1. ZOPICLONE [Concomitant]
     Active Substance: ZOPICLONE
  2. LUPRON [Suspect]
     Active Substance: LEUPROLIDE ACETATE
     Indication: ENDOMETRIOSIS
     Route: 030
     Dates: start: 20140530, end: 20151201
  3. CIPRILEX [Concomitant]

REACTIONS (13)
  - Arthralgia [None]
  - Mental impairment [None]
  - Hot flush [None]
  - Cognitive disorder [None]
  - Night sweats [None]
  - Raynaud^s phenomenon [None]
  - Weight increased [None]
  - Gastrointestinal disorder [None]
  - Mood altered [None]
  - Suicidal ideation [None]
  - Amnesia [None]
  - Anger [None]
  - Bone pain [None]

NARRATIVE: CASE EVENT DATE: 20140530
